FAERS Safety Report 24670565 (Version 4)
Quarter: 2025Q1

REPORT INFORMATION
  Report Type: Report from Study
  Country: FR (occurrence: FR)
  Receive Date: 20241127
  Receipt Date: 20250205
  Transmission Date: 20250409
  Serious: Yes (Death, Other)
  Sender: DAIICHI
  Company Number: FR-DSJP-DS-2024-109928-FR

PATIENT
  Sex: Female
  Weight: 100 kg

DRUGS (10)
  1. ENHERTU [Suspect]
     Active Substance: FAM-TRASTUZUMAB DERUXTECAN-NXKI
     Indication: HER2 low breast cancer
     Route: 040
     Dates: start: 20240830, end: 20240830
  2. ENHERTU [Suspect]
     Active Substance: FAM-TRASTUZUMAB DERUXTECAN-NXKI
     Indication: Breast cancer metastatic
  3. XGEVA [Suspect]
     Active Substance: DENOSUMAB
     Indication: Bone disorder
     Dosage: 120 MG, ONCE EVERY 4 WK
     Route: 058
     Dates: start: 20240419, end: 20240419
  4. XGEVA [Suspect]
     Active Substance: DENOSUMAB
     Indication: Prophylaxis
  5. UNSPECIFIED INGREDIENT [Concomitant]
     Active Substance: UNSPECIFIED INGREDIENT
     Indication: Antiemetic supportive care
     Route: 065
  6. OROCAL VITAMINE D3 [CALCIUM PHOSPHATE;COLECALCIFEROL] [Concomitant]
     Indication: Vitamin supplementation
     Dosage: 1 TABLET QD
     Route: 048
     Dates: start: 20220628
  7. OROCAL VITAMINE D3 [CALCIUM PHOSPHATE;COLECALCIFEROL] [Concomitant]
     Indication: Vitamin D deficiency
  8. BISOPROLOL [Concomitant]
     Active Substance: BISOPROLOL
     Indication: Hypertension
     Dosage: 10 MG, QD
     Route: 048
     Dates: start: 20230101
  9. INSULIN ASPART [Concomitant]
     Active Substance: INSULIN ASPART
     Indication: Insulin-requiring type 2 diabetes mellitus
     Route: 058
     Dates: start: 20231130
  10. TOUJEO [Concomitant]
     Active Substance: INSULIN GLARGINE
     Indication: Insulin-requiring type 2 diabetes mellitus
     Dosage: 40 IU, QD
     Route: 058
     Dates: start: 20230101

REACTIONS (5)
  - Syncope [Fatal]
  - Pulmonary toxicity [Fatal]
  - Pyelonephritis [Fatal]
  - Organising pneumonia [Fatal]
  - Eosinophilic pneumonia [Fatal]

NARRATIVE: CASE EVENT DATE: 20240101
